FAERS Safety Report 25396622 (Version 1)
Quarter: 2025Q2

REPORT INFORMATION
  Report Type: Spontaneous
  Country: AU (occurrence: None)
  Receive Date: 20250604
  Receipt Date: 20250604
  Transmission Date: 20250717
  Serious: Yes (Other)
  Sender: FDA-CTU
  Company Number: None

PATIENT
  Age: 68 Year
  Sex: Female
  Weight: 70 kg

DRUGS (2)
  1. ZOLOFT [Suspect]
     Active Substance: SERTRALINE HYDROCHLORIDE
     Indication: Depression
  2. PROBIOTICS NOS [Concomitant]
     Active Substance: PROBIOTICS NOS

REACTIONS (16)
  - Weight increased [None]
  - Libido decreased [None]
  - Brain fog [None]
  - Irritability [None]
  - Dizziness [None]
  - Palpitations [None]
  - Nausea [None]
  - Retching [None]
  - Incontinence [None]
  - Hypertension [None]
  - Fatigue [None]
  - Withdrawal syndrome [None]
  - Affective disorder [None]
  - Cognitive disorder [None]
  - Weight decreased [None]
  - Pain [None]

NARRATIVE: CASE EVENT DATE: 20231105
